FAERS Safety Report 8729801 (Version 2)
Quarter: 2012Q4

REPORT INFORMATION
  Report Type: 
  Country: CN (occurrence: CN)
  Receive Date: 20120817
  Receipt Date: 20120904
  Transmission Date: 20130627
  Serious: Yes (Other)
  Sender: FDA-Public Use
  Company Number: CN-ASTRAZENECA-2012SE56465

PATIENT
  Age: 47 Year
  Sex: Male

DRUGS (2)
  1. LIDOCAINE [Suspect]
     Indication: VENTRICULAR ARRHYTHMIA
     Route: 042
  2. LIDOCAINE [Suspect]
     Indication: VENTRICULAR ARRHYTHMIA
     Dosage: continuous infusion OF 1mg/h.
     Route: 042

REACTIONS (1)
  - Mania [Recovered/Resolved]
